FAERS Safety Report 8815360 (Version 3)
Quarter: 2012Q4

REPORT INFORMATION
  Report Type: 
  Country: JP (occurrence: JP)
  Receive Date: 20120928
  Receipt Date: 20121029
  Transmission Date: 20130627
  Serious: Yes (Life-Threatening, Hospitalization)
  Sender: FDA-Public Use
  Company Number: JP-009507513-1209JPN010212

PATIENT
  Age: 72 Year
  Sex: Female
  Weight: 50 kg

DRUGS (5)
  1. GASTER [Suspect]
     Indication: PROPHYLAXIS
     Dosage: 20 mg, qd
     Route: 041
     Dates: start: 20120810, end: 20120810
  2. LACTEC [Concomitant]
     Indication: CONTUSION
     Dosage: UNK
     Dates: start: 20120810, end: 20120812
  3. LACTEC [Concomitant]
     Indication: CONTUSION
  4. LACTEC [Concomitant]
     Indication: SCAPULA FRACTURE
  5. TETANUS TOXOID ADSORBED [Concomitant]
     Indication: PROPHYLAXIS

REACTIONS (1)
  - Anaphylactic shock [Recovered/Resolved]
